FAERS Safety Report 25515766 (Version 1)
Quarter: 2025Q3

REPORT INFORMATION
  Report Type: Spontaneous
  Country: US (occurrence: US)
  Receive Date: 20250704
  Receipt Date: 20250704
  Transmission Date: 20251021
  Serious: No
  Sender: RADIUS PHARM
  Company Number: US-RADIUS HEALTH INC.-2025US000830

PATIENT
  Sex: Female

DRUGS (3)
  1. TYMLOS [Suspect]
     Active Substance: ABALOPARATIDE
     Indication: Product used for unknown indication
     Route: 058
  2. TYMLOS [Suspect]
     Active Substance: ABALOPARATIDE
     Route: 058
  3. TYLENOL [Concomitant]
     Active Substance: ACETAMINOPHEN
     Indication: Product used for unknown indication

REACTIONS (4)
  - Intentional dose omission [Recovered/Resolved]
  - Intentional product misuse [Recovered/Resolved]
  - Bone pain [Unknown]
  - Pain in extremity [Unknown]
